FAERS Safety Report 18986708 (Version 1)
Quarter: 2021Q1

REPORT INFORMATION
  Report Type: Spontaneous
  Country: DE (occurrence: DE)
  Receive Date: 20210309
  Receipt Date: 20210309
  Transmission Date: 20210420
  Serious: Yes (Life-Threatening, Hospitalization)
  Sender: FDA-Public Use
  Company Number: NVSC2021DE051979

PATIENT
  Age: 5 Year
  Sex: Female
  Weight: 21 kg

DRUGS (4)
  1. MYCOPHENOLATE MOFETIL. [Suspect]
     Active Substance: MYCOPHENOLATE MOFETIL
     Indication: ALLOGENIC STEM CELL TRANSPLANTATION
     Dosage: 500 MG, QD (EVERY DAY 2 SEPERATE DOSES)
     Route: 048
     Dates: start: 20190320, end: 20190629
  2. COLECALCIFEROL [Concomitant]
     Active Substance: CHOLECALCIFEROL
     Indication: VITAMIN SUPPLEMENTATION
     Dosage: 250 IU, QD (EVERY DAY)
     Route: 048
     Dates: start: 201705
  3. COTRIMOXAZOL [Concomitant]
     Active Substance: SULFAMETHOXAZOLE\TRIMETHOPRIM
     Indication: INFECTION PROPHYLAXIS
     Dosage: 40 MG, 0 ? 40MG FR/SA/SO
     Route: 048
     Dates: start: 201704, end: 20190629
  4. URSOFALK [Concomitant]
     Active Substance: URSODIOL
     Indication: GRAFT VERSUS HOST DISEASE
     Dosage: 100 MG, QD (EVERY DAY) (SUSPENSION)
     Route: 048
     Dates: start: 201702

REACTIONS (2)
  - Multiple organ dysfunction syndrome [Recovered/Resolved with Sequelae]
  - Pneumococcal sepsis [Recovered/Resolved with Sequelae]

NARRATIVE: CASE EVENT DATE: 20190628
